FAERS Safety Report 10158947 (Version 1)
Quarter: 2014Q2

REPORT INFORMATION
  Report Type: Spontaneous
  Country: US (occurrence: US)
  Receive Date: 20140508
  Receipt Date: 20140508
  Transmission Date: 20141212
  Serious: No
  Sender: FDA-Public Use
  Company Number: US-BIOGENIDEC-2014BI039805

PATIENT
  Age: 42 Year
  Sex: Female
  Weight: 65 kg

DRUGS (9)
  1. TECFIDERA [Suspect]
     Indication: MULTIPLE SCLEROSIS
     Dates: start: 201304, end: 201309
  2. VIT D [Concomitant]
  3. VIT D [Concomitant]
  4. BACLOFEN [Concomitant]
  5. FISH OIL [Concomitant]
  6. IBUPROFEN [Concomitant]
  7. NEURONTIN [Concomitant]
  8. VESICARE [Concomitant]
  9. ZANAFLEX [Concomitant]

REACTIONS (1)
  - Drug intolerance [Unknown]
